FAERS Safety Report 11828385 (Version 1)
Quarter: 2015Q4

REPORT INFORMATION
  Report Type: Spontaneous
  Country: SA (occurrence: SA)
  Receive Date: 20151211
  Receipt Date: 20151211
  Transmission Date: 20160305
  Serious: Yes (Other)
  Sender: FDA-Public Use
  Company Number: SA-MYLANLABS-2015M1033247

PATIENT

DRUGS (4)
  1. DOXORUBICIN [Suspect]
     Active Substance: DOXORUBICIN
     Indication: ENDOMETRIAL CANCER
  2. CISPLATIN. [Suspect]
     Active Substance: CISPLATIN
     Indication: ENDOMETRIAL CANCER
  3. CISPLATIN. [Suspect]
     Active Substance: CISPLATIN
     Indication: OVARIAN GRANULOSA CELL TUMOUR
     Dosage: 50MG/M2, ALLOWED TO CIRCULATE IN THE ABDOMINO PELVIC CAVITY FOR 90 MINUTES FOR 41.0-42.2 DEGC
     Route: 033
  4. DOXORUBICIN [Suspect]
     Active Substance: DOXORUBICIN
     Indication: OVARIAN GRANULOSA CELL TUMOUR
     Dosage: 15MG/M2, ALLOWED TO CIRCULATE IN THE ABDOMINO PELVIC CAVITY FOR 90 MINUTES FOR 41.0-42.2 DEGC
     Route: 033

REACTIONS (2)
  - Anastomotic leak [Unknown]
  - Urinary tract infection [Recovered/Resolved]
